FAERS Safety Report 9486124 (Version 1)
Quarter: 2013Q3

REPORT INFORMATION
  Report Type: Spontaneous
  Country: US (occurrence: US)
  Receive Date: 20130829
  Receipt Date: 20130829
  Transmission Date: 20140515
  Serious: Yes (Other)
  Sender: FDA-Public Use
  Company Number: US-ELI_LILLY_AND_COMPANY-US201308008099

PATIENT
  Sex: Female

DRUGS (1)
  1. EFFIENT [Suspect]

REACTIONS (1)
  - Sepsis [Unknown]
